FAERS Safety Report 9078564 (Version 1)
Quarter: 2013Q1

REPORT INFORMATION
  Report Type: Report from Study
  Country: US (occurrence: US)
  Receive Date: 20130130
  Receipt Date: 20130130
  Transmission Date: 20140127
  Serious: Yes (Hospitalization)
  Sender: FDA-Public Use
  Company Number: US-ABBOTT-12P-163-0956789-00

PATIENT
  Age: 67 Year
  Sex: Male

DRUGS (7)
  1. HUMIRA 40 MG/0.8 ML PEN [Suspect]
     Indication: RHEUMATOID ARTHRITIS
     Dates: start: 200705
  2. DIOVAN [Concomitant]
     Indication: BLOOD PRESSURE
  3. NADOLOL [Concomitant]
     Indication: BLOOD PRESSURE
  4. HYDROCHLOROTHIAZIDE [Concomitant]
     Indication: BLOOD PRESSURE
  5. OSTEOBIFLEX OTC [Concomitant]
     Indication: SUPPLEMENTATION THERAPY
  6. MULTIVITAMIN [Concomitant]
     Indication: VITAMIN SUPPLEMENTATION
  7. METROGEL [Concomitant]
     Indication: ROSACEA

REACTIONS (11)
  - Bronchitis chronic [Not Recovered/Not Resolved]
  - Pneumonia [Unknown]
  - Upper respiratory tract infection [Unknown]
  - Musculoskeletal pain [Unknown]
  - Respiratory tract infection bacterial [Unknown]
  - Blood cholesterol abnormal [Unknown]
  - Nasal congestion [Unknown]
  - Respiratory disorder [Unknown]
  - Hypersensitivity [Unknown]
  - Rash [Unknown]
  - Folliculitis [Unknown]
